FAERS Safety Report 6237669-5 (Version None)
Quarter: 2009Q2

REPORT INFORMATION
  Report Type: 
  Country: None (occurrence: None)
  Receive Date: 20090611
  Receipt Date: 20090604
  Transmission Date: 20091009
  Serious: Yes (Hospitalization)
  Sender: FDA-Public Use
  Company Number: 2009020113

PATIENT
  Sex: Female
  Weight: 119.7 kg

DRUGS (34)
  1. VIVAGLOBIN [Suspect]
     Indication: IMMUNODEFICIENCY
     Dosage: SEE IMAGE
     Route: 058
     Dates: start: 20090416, end: 20090417
  2. VIVAGLOBIN [Suspect]
     Indication: IMMUNODEFICIENCY
     Dosage: SEE IMAGE
     Route: 058
     Dates: start: 20090416, end: 20090417
  3. VIVAGLOBIN [Suspect]
     Indication: IMMUNODEFICIENCY
     Dosage: SEE IMAGE
     Route: 058
     Dates: start: 20090416, end: 20090417
  4. VIVAGLOBIN [Suspect]
     Indication: IMMUNODEFICIENCY
     Dosage: SEE IMAGE
     Route: 058
     Dates: start: 20090416, end: 20090417
  5. VIVAGLOBIN [Suspect]
     Indication: IMMUNODEFICIENCY
     Dosage: SEE IMAGE
     Route: 058
     Dates: start: 20090416, end: 20090417
  6. VIVAGLOBIN [Suspect]
     Indication: IMMUNODEFICIENCY
     Dosage: SEE IMAGE
     Route: 058
     Dates: start: 20090416, end: 20090417
  7. VIVAGLOBIN [Suspect]
     Indication: IMMUNODEFICIENCY
     Dosage: SEE IMAGE
     Route: 058
     Dates: start: 20090416, end: 20090417
  8. VIVAGLOBIN [Suspect]
  9. VIVAGLOBIN [Suspect]
  10. VIVAGLOBIN [Suspect]
  11. VIVAGLOBIN [Suspect]
  12. VIVAGLOBIN [Suspect]
  13. BYETTA (DRUG USED IN DIABETES) [Concomitant]
  14. OXYGEN (OXYGEN) [Concomitant]
  15. LIDOCAINE/PRILOCAINE (LIDOCAINE) [Concomitant]
  16. PHENERGAN (PHENERGAN /01851401/) [Concomitant]
  17. DIPHENHYDRAMINE HCL [Concomitant]
  18. ATIVAN [Concomitant]
  19. EFFEXOR [Concomitant]
  20. LUVOX [Concomitant]
  21. LASIX [Concomitant]
  22. TOPAMAX [Concomitant]
  23. NORVASC [Concomitant]
  24. DIOVAN [Concomitant]
  25. ALLEGRA [Concomitant]
  26. OS-CAL (OS-CAL) [Concomitant]
  27. GLYBURIDE [Concomitant]
  28. PULMICORT [Concomitant]
  29. PREVACID [Concomitant]
  30. ACCOLATE [Concomitant]
  31. METHOCARBAMOL [Concomitant]
  32. ASPIRIN [Concomitant]
  33. RISPERDAL [Concomitant]
  34. DUONEB [Concomitant]

REACTIONS (5)
  - INFLUENZA LIKE ILLNESS [None]
  - INJECTION SITE REACTION [None]
  - MENINGITIS ASEPTIC [None]
  - NAUSEA [None]
  - NECK PAIN [None]
